FAERS Safety Report 4430534-5 (Version None)
Quarter: 2004Q3

REPORT INFORMATION
  Report Type: 
  Country: None (occurrence: None)
  Receive Date: 20040818
  Receipt Date: 20040730
  Transmission Date: 20050211
  Serious: Yes (Hospitalization)
  Sender: FDA-Public Use
  Company Number: EWC040840170

PATIENT
  Age: 81 Year
  Sex: Female

DRUGS (8)
  1. FORTEO [Suspect]
     Indication: OSTEOPOROSIS
     Dosage: 20 UG/1 DAY
     Dates: start: 20040614, end: 20040724
  2. ENAPREN(ENALAPRIL MALEATE) [Concomitant]
  3. TORVAST(ATORVASTATIN CALCIUM) [Concomitant]
  4. LASIX [Concomitant]
  5. CORDARONE [Concomitant]
  6. LUCEN(ESOMEPRAZOLE) [Concomitant]
  7. KANRENOL(POTASSIUM CANRENOATE) [Concomitant]
  8. SINGULAIR(MONTELUKAST) [Concomitant]

REACTIONS (1)
  - MYOCARDIAL INFARCTION [None]
